FAERS Safety Report 10434129 (Version 1)
Quarter: 2014Q3

REPORT INFORMATION
  Report Type: Not Available
  Country: CN (occurrence: CN)
  Receive Date: 20140905
  Receipt Date: 20140905
  Transmission Date: 20150326
  Serious: Yes (Hospitalization, Other)
  Sender: FDA-Public Use
  Company Number: CN-NAPPMUNDI-GBR-2014-0021067

PATIENT
  Age: 62 Year
  Sex: Female
  Weight: 45 kg

DRUGS (3)
  1. VALPROAT [Concomitant]
     Active Substance: VALPROATE SODIUM
  2. MS CONTIN [Suspect]
     Active Substance: MORPHINE SULFATE
     Indication: PAIN
     Dosage: 30 MG, TID
     Route: 048
     Dates: start: 20131020, end: 20131024
  3. TIENAM [Suspect]
     Active Substance: CILASTATIN SODIUM\IMIPENEM
     Indication: BACTERIAL INFECTION
     Dosage: 1 G, TID
     Route: 042
     Dates: start: 20131020, end: 20131024

REACTIONS (1)
  - Tic [Recovering/Resolving]

NARRATIVE: CASE EVENT DATE: 20131024
